FAERS Safety Report 9227667 (Version 1)
Quarter: 2013Q2

REPORT INFORMATION
  Report Type: Spontaneous
  Country: US (occurrence: None)
  Receive Date: 20130412
  Receipt Date: 20130412
  Transmission Date: 20140414
  Serious: Yes (Hospitalization)
  Sender: FDA-Public Use
  Company Number: None

PATIENT
  Age: 54 Year
  Sex: Male
  Weight: 76.8 kg

DRUGS (4)
  1. BEVACIZUMAB [Suspect]
  2. LEUCOVORIN CALCIUM [Suspect]
  3. ELOXATIN [Suspect]
  4. 5-FLUOROURACIL [Suspect]

REACTIONS (4)
  - Abdominal pain lower [None]
  - Infection [None]
  - Device dislocation [None]
  - Large intestine perforation [None]
